FAERS Safety Report 15054009 (Version 1)
Quarter: 2018Q2

REPORT INFORMATION
  Report Type: Report from Study
  Country: FR (occurrence: FR)
  Receive Date: 20180622
  Receipt Date: 20180622
  Transmission Date: 20180711
  Serious: Yes (Death, Life-Threatening, Hospitalization, Other)
  Sender: FDA-Public Use
  Company Number: FR-BRISTOL-MYERS SQUIBB COMPANY-BMS-2018-058099

PATIENT
  Age: 49 Year
  Sex: Male
  Weight: 87 kg

DRUGS (2)
  1. IPILIMUMAB [Suspect]
     Active Substance: IPILIMUMAB
     Indication: METASTATIC RENAL CELL CARCINOMA
     Dosage: 83 MG, UNK
     Route: 065
     Dates: start: 20171026
  2. NIVOLUMAB [Suspect]
     Active Substance: NIVOLUMAB
     Indication: METASTATIC RENAL CELL CARCINOMA
     Dosage: 250 MG, UNK
     Route: 065
     Dates: start: 20171026

REACTIONS (2)
  - Dyspnoea [Fatal]
  - Respiratory failure [Fatal]

NARRATIVE: CASE EVENT DATE: 20171028
